FAERS Safety Report 6561764-4 (Version None)
Quarter: 2010Q1

REPORT INFORMATION
  Report Type: 
  Country: None (occurrence: None)
  Receive Date: 20100130
  Receipt Date: 20091027
  Transmission Date: 20100710
  Serious: No
  Sender: FDA-Public Use
  Company Number: US-ABBOTT-09P-163-0605369-00

PATIENT
  Sex: Female
  Weight: 74.456 kg

DRUGS (4)
  1. HUMIRA [Suspect]
     Indication: PSORIATIC ARTHROPATHY
     Dates: start: 20091021
  2. PAXIL [Concomitant]
     Indication: DRUG USE FOR UNKNOWN INDICATION
  3. FLU SHOT [Concomitant]
     Indication: DRUG USE FOR UNKNOWN INDICATION
     Dates: start: 20091005, end: 20091005
  4. PNEUMONIA VACCINE [Concomitant]
     Indication: DRUG USE FOR UNKNOWN INDICATION
     Dates: start: 20091005, end: 20091005

REACTIONS (4)
  - FEELING OF BODY TEMPERATURE CHANGE [None]
  - INFLUENZA [None]
  - NAUSEA [None]
  - VOMITING [None]
